FAERS Safety Report 8815046 (Version 1)
Quarter: 2012Q4

REPORT INFORMATION
  Report Type: 
  Country: DE (occurrence: DE)
  Receive Date: 20120928
  Receipt Date: 20120928
  Transmission Date: 20130627
  Serious: Yes (Hospitalization)
  Sender: FDA-Public Use
  Company Number: DE-ELI_LILLY_AND_COMPANY-DE201209005567

PATIENT
  Age: 69 Year
  Sex: Male

DRUGS (3)
  1. FORSTEO [Suspect]
     Indication: OSTEOPOROSIS
     Dosage: UNK, unknown
     Route: 058
     Dates: start: 201203
  2. OMEPRAZOL [Concomitant]
     Dosage: UNK, unknown
     Route: 065
  3. CORTISON [Concomitant]
     Dosage: UNK, unknown
     Route: 065

REACTIONS (1)
  - Spinal fracture [Unknown]
